FAERS Safety Report 7620292-5 (Version None)
Quarter: 2011Q3

REPORT INFORMATION
  Report Type: 
  Country: None (occurrence: None)
  Receive Date: 20110719
  Receipt Date: 20110711
  Transmission Date: 20111222
  Serious: Yes (Death, Hospitalization)
  Sender: FDA-Public Use
  Company Number: PHHY2011NL37276

PATIENT
  Sex: Male

DRUGS (3)
  1. ZOMETA [Suspect]
     Dosage: 4 MG/5ML, PER 28 DAYS
     Route: 042
     Dates: start: 20110406
  2. ZOMETA [Suspect]
     Indication: PROSTATE CANCER
     Dosage: 4 MG/5ML, PER 28 DAYS
     Route: 042
     Dates: start: 20080131
  3. ZOMETA [Suspect]
     Dosage: 4 MG/5ML, PER 28 DAYS
     Route: 042
     Dates: start: 20110307

REACTIONS (2)
  - GENERAL PHYSICAL HEALTH DETERIORATION [None]
  - RENAL IMPAIRMENT [None]
